FAERS Safety Report 19894047 (Version 1)
Quarter: 2021Q3

REPORT INFORMATION
  Report Type: Spontaneous
  Country: US (occurrence: US)
  Receive Date: 20210928
  Receipt Date: 20210928
  Transmission Date: 20211014
  Serious: Yes (Other)
  Sender: FDA-Public Use
  Company Number: US-TAKEDA-2021TUS057725

PATIENT
  Sex: Female

DRUGS (1)
  1. MOTEGRITY [Suspect]
     Active Substance: PRUCALOPRIDE SUCCINATE
     Indication: AMYLOIDOSIS
     Dosage: UNK UNK, Q2WEEKS
     Route: 065

REACTIONS (2)
  - Plasma cell myeloma recurrent [Unknown]
  - Gastrointestinal amyloidosis [Unknown]
